FAERS Safety Report 4500540-0 (Version None)
Quarter: 2004Q4

REPORT INFORMATION
  Report Type: 
  Country: None (occurrence: None)
  Receive Date: 20041110
  Receipt Date: 20041029
  Transmission Date: 20050328
  Serious: Yes (Other)
  Sender: FDA-Public Use
  Company Number: HQWYE200202NOV04

PATIENT
  Age: 68 Year
  Sex: Female
  Weight: 52.21 kg

DRUGS (4)
  1. EFFEXOR XR [Suspect]
     Dosage: ORAL;   300 MG 1X PER 1 DAY, ORAL;  75 MG 1X PER 1 DAY, ORAL
     Route: 048
     Dates: start: 20040901, end: 20041001
  2. EFFEXOR XR [Suspect]
     Dosage: ORAL;   300 MG 1X PER 1 DAY, ORAL;  75 MG 1X PER 1 DAY, ORAL
     Route: 048
     Dates: start: 20041001, end: 20041001
  3. EFFEXOR XR [Suspect]
     Dosage: ORAL;   300 MG 1X PER 1 DAY, ORAL;  75 MG 1X PER 1 DAY, ORAL
     Route: 048
     Dates: start: 20041001
  4. ZANTAC [Suspect]
     Dosage: DURATION: ^FOR YEARS^

REACTIONS (5)
  - DIZZINESS [None]
  - DRUG INTERACTION [None]
  - DRUG TOXICITY [None]
  - DYSSTASIA [None]
  - ORTHOSTATIC HYPOTENSION [None]
